FAERS Safety Report 23650507 (Version 1)
Quarter: 2024Q1

REPORT INFORMATION
  Report Type: Spontaneous
  Country: US (occurrence: None)
  Receive Date: 20240320
  Receipt Date: 20240320
  Transmission Date: 20240410
  Serious: Yes (Other)
  Sender: FDA-Public Use
  Company Number: US-ROCHE-3442501

PATIENT
  Age: 74 Year
  Sex: Female

DRUGS (1)
  1. VABYSMO [Suspect]
     Active Substance: FARICIMAB\FARICIMAB-SVOA
     Indication: Neovascular age-related macular degeneration
     Dosage: ON 24/MAY/2023, RECEIVED MOST RECENT DOSE OF FARICIMAB.
     Route: 050
     Dates: start: 20230329

REACTIONS (6)
  - Uveitis [Unknown]
  - Product sterility issue [Unknown]
  - Off label use [Unknown]
  - Vision blurred [Unknown]
  - Intraocular pressure increased [Unknown]
  - Corneal oedema [Unknown]

NARRATIVE: CASE EVENT DATE: 20230602
